FAERS Safety Report 5993926-9 (Version None)
Quarter: 2008Q4

REPORT INFORMATION
  Report Type: 
  Country: None (occurrence: None)
  Receive Date: 20081212
  Receipt Date: 20080918
  Transmission Date: 20090506
  Serious: No
  Sender: FDA-Public Use
  Company Number: US-ABBOTT-08P-163-0469363-00

PATIENT
  Sex: Female
  Weight: 51.302 kg

DRUGS (6)
  1. HUMIRA [Suspect]
     Indication: COLITIS ULCERATIVE
     Route: 050
     Dates: start: 20080729, end: 20080729
  2. HUMIRA [Suspect]
     Route: 050
     Dates: start: 20080812
  3. PREDNISONE TAB [Concomitant]
     Indication: COLITIS ULCERATIVE
     Dosage: 20 MG QD,WEAN BY 5 MG DOWN 20 MG QD, WEAN DOWN BY 5 MG EVERY WEEK
     Route: 048
     Dates: start: 20080501
  4. COLAZOL [Concomitant]
     Indication: COLITIS ULCERATIVE
     Route: 048
     Dates: start: 20020101
  5. COLAZOL [Concomitant]
     Route: 048
  6. AZATHIOPRINE [Concomitant]
     Indication: COLITIS ULCERATIVE
     Route: 048
     Dates: start: 20070101

REACTIONS (1)
  - ACCIDENTAL EXPOSURE [None]
